FAERS Safety Report 14710310 (Version 1)
Quarter: 2018Q2

REPORT INFORMATION
  Report Type: Spontaneous
  Country: US (occurrence: US)
  Receive Date: 20180403
  Receipt Date: 20180403
  Transmission Date: 20180711
  Serious: No
  Sender: FDA-Public Use
  Company Number: US-ROCHE-1953787

PATIENT
  Age: 74 Year
  Sex: Male

DRUGS (1)
  1. ERIVEDGE [Suspect]
     Active Substance: VISMODEGIB
     Indication: BASAL CELL NAEVUS SYNDROME
     Dosage: NO
     Route: 065

REACTIONS (5)
  - Squamous cell carcinoma of skin [Unknown]
  - Fatigue [Unknown]
  - Muscle spasms [Unknown]
  - Weight decreased [Unknown]
  - Ageusia [Unknown]
